FAERS Safety Report 23623586 (Version 1)
Quarter: 2024Q1

REPORT INFORMATION
  Report Type: Spontaneous
  Country: CH (occurrence: CH)
  Receive Date: 20240312
  Receipt Date: 20240312
  Transmission Date: 20240410
  Serious: Yes (Hospitalization)
  Sender: FDA-Public Use
  Company Number: None

PATIENT
  Age: 58 Year
  Sex: Female

DRUGS (11)
  1. LORAZEPAM [Suspect]
     Active Substance: LORAZEPAM
     Dosage: 2.5 MG, 2X/DAY
     Route: 048
  2. LITHIUM SULFATE [Suspect]
     Active Substance: LITHIUM SULFATE
     Dosage: 330 MG ( 2 TABS IN THE MORNING, 2 TABS IN THE EVENING)
     Route: 048
     Dates: end: 20240213
  3. SERTRALINE HYDROCHLORIDE [Suspect]
     Active Substance: SERTRALINE HYDROCHLORIDE
     Dosage: 100 MG, 1X/DAY (THE MORNING)
     Route: 048
  4. SERTRALINE HYDROCHLORIDE [Suspect]
     Active Substance: SERTRALINE HYDROCHLORIDE
     Dosage: 50 MG, 1X/DAY (THE MORNING)
     Route: 048
  5. QUETIAPINE FUMARATE [Suspect]
     Active Substance: QUETIAPINE FUMARATE
     Dosage: 100 MG, 1X/DAY, 2 TABLET IN THE EVENING
     Route: 048
  6. RIVOTRIL [Suspect]
     Active Substance: CLONAZEPAM
     Dosage: 0.5 MG, 1X/DAY (1 TABLET IN THE EVENING)
     Route: 048
  7. RIVOTRIL [Suspect]
     Active Substance: CLONAZEPAM
     Dosage: 0.5 MG, AS NEEDED (1 TAB AS NEEDED)
  8. FLURAZEPAM HYDROCHLORIDE [Suspect]
     Active Substance: FLURAZEPAM HYDROCHLORIDE
     Dosage: 15 MG, 1X/DAY (1/2 TABLET IN THE EVENING)
     Route: 048
  9. FLURAZEPAM HYDROCHLORIDE [Suspect]
     Active Substance: FLURAZEPAM HYDROCHLORIDE
     Dosage: 15 MG, AS NEEDED (1/2 TAB AS NEEDED)
  10. CLOTHIAPINE [Suspect]
     Active Substance: CLOTHIAPINE
     Dosage: 20 MG, 1X/DAY (1/2 TABLET IN THE EVENING)
     Route: 048
  11. CLOTHIAPINE [Suspect]
     Active Substance: CLOTHIAPINE
     Dosage: 20 MG, AS NEEDED (1/2 TAB AS NEEDED)

REACTIONS (5)
  - Altered state of consciousness [Recovered/Resolved]
  - Dysarthria [Recovered/Resolved]
  - Asthenia [Recovered/Resolved]
  - Fall [Recovered/Resolved]
  - Malaise [Recovered/Resolved]

NARRATIVE: CASE EVENT DATE: 20240213
